FAERS Safety Report 21885516 (Version 2)
Quarter: 2023Q1

REPORT INFORMATION
  Report Type: Spontaneous
  Country: US (occurrence: US)
  Receive Date: 20230119
  Receipt Date: 20230210
  Transmission Date: 20230418
  Serious: Yes (Death, Other)
  Sender: FDA-Public Use
  Company Number: US-LANTHEUS-LMI-2023-00035

PATIENT
  Age: 62 Year
  Sex: Female
  Weight: 86 kg

DRUGS (1)
  1. DEFINITY [Suspect]
     Active Substance: PERFLUTREN
     Indication: Echocardiogram
     Dosage: 2 ML (DILUTION DETAILS NOT REPORTED)
     Route: 042
     Dates: start: 20220802, end: 20220802

REACTIONS (10)
  - Cardiac arrest [Fatal]
  - Seizure [Unknown]
  - Unresponsive to stimuli [Unknown]
  - Anxiety [Unknown]
  - Aggression [Unknown]
  - Moaning [Unknown]
  - Foaming at mouth [Unknown]
  - Dyspnoea [Unknown]
  - Cough [Unknown]
  - Vomiting [Unknown]

NARRATIVE: CASE EVENT DATE: 20220802
